FAERS Safety Report 12165363 (Version 2)
Quarter: 2016Q2

REPORT INFORMATION
  Report Type: Spontaneous
  Country: US (occurrence: US)
  Receive Date: 20160309
  Receipt Date: 20160425
  Transmission Date: 20160815
  Serious: Yes (Other)
  Sender: FDA-Public Use
  Company Number: US-AKORN PHARMACEUTICALS-2016AKN00139

PATIENT
  Age: 15 Year
  Sex: Male
  Weight: 63.49 kg

DRUGS (3)
  1. MYORISAN [Suspect]
     Active Substance: ISOTRETINOIN
     Indication: ACNE CYSTIC
     Dosage: 20 MG, UNK
     Dates: start: 20160223, end: 20160223
  2. MYORISAN [Suspect]
     Active Substance: ISOTRETINOIN
     Indication: ACNE CYSTIC
     Dosage: 40 MG, 1X/DAY
     Dates: start: 20160106, end: 20160222
  3. MULTIVITAMIN (GUMMY) [Concomitant]

REACTIONS (15)
  - Brain oedema [Unknown]
  - Screaming [Recovered/Resolved]
  - Vision blurred [Recovered/Resolved]
  - Migraine [Recovered/Resolved]
  - Speech disorder [Recovered/Resolved]
  - Educational problem [Unknown]
  - Retinitis [Unknown]
  - Blood glucose decreased [Unknown]
  - Back pain [Recovered/Resolved]
  - Feeling abnormal [Recovered/Resolved]
  - Dizziness [Unknown]
  - Visual field defect [Recovered/Resolved]
  - Depression [Recovered/Resolved]
  - Hypoaesthesia [Recovered/Resolved]
  - Mood altered [Recovered/Resolved]

NARRATIVE: CASE EVENT DATE: 2016
